FAERS Safety Report 7315310-8 (Version None)
Quarter: 2011Q1

REPORT INFORMATION
  Report Type: 
  Country: None (occurrence: None)
  Receive Date: 20110225
  Receipt Date: 20110217
  Transmission Date: 20110831
  Serious: Yes (Hospitalization)
  Sender: FDA-Public Use
  Company Number: PHHO2010US18823

PATIENT
  Sex: Female

DRUGS (2)
  1. RADIATION THERAPY [Concomitant]
     Indication: METASTASES TO CENTRAL NERVOUS SYSTEM
  2. AFINITOR [Suspect]
     Indication: METASTASES TO CENTRAL NERVOUS SYSTEM
     Dosage: 5 MG DAILY
     Route: 048
     Dates: start: 20101003, end: 20101017

REACTIONS (8)
  - HEADACHE [None]
  - BRAIN OEDEMA [None]
  - CONSTIPATION [None]
  - METASTASES TO BONE [None]
  - MENTAL STATUS CHANGES [None]
  - CRANIOTOMY [None]
  - METASTASES TO CENTRAL NERVOUS SYSTEM [None]
  - HYPOAESTHESIA [None]
